FAERS Safety Report 10935780 (Version 1)
Quarter: 2015Q1

REPORT INFORMATION
  Report Type: Spontaneous
  Country: US (occurrence: US)
  Receive Date: 20150320
  Receipt Date: 20150320
  Transmission Date: 20150721
  Serious: No
  Sender: FDA-Public Use
  Company Number: US-ASTRAZENECA-2015SE22282

PATIENT
  Age: 19932 Day
  Sex: Male
  Weight: 83.9 kg

DRUGS (3)
  1. GLIPIZIDE. [Concomitant]
     Active Substance: GLIPIZIDE
  2. BYDUREON [Suspect]
     Active Substance: EXENATIDE
     Indication: TYPE 2 DIABETES MELLITUS
     Dosage: 2 MG, 4 COUNT, ONCE A WEEK
     Route: 058
     Dates: start: 20141220
  3. GLIPIZIDE. [Concomitant]
     Active Substance: GLIPIZIDE
     Dosage: SUBSTITUTE

REACTIONS (3)
  - Blood glucose decreased [Unknown]
  - Asthenia [Unknown]
  - Underdose [Unknown]

NARRATIVE: CASE EVENT DATE: 20150301
